FAERS Safety Report 5476319-2 (Version None)
Quarter: 2007Q3

REPORT INFORMATION
  Report Type: 
  Country: None (occurrence: None)
  Receive Date: 20070906
  Receipt Date: 20070407
  Transmission Date: 20080115
  Serious: Yes (Hospitalization, Other)
  Sender: FDA-Public Use
  Company Number: 2007017084

PATIENT
  Age: 39 Year
  Sex: Female
  Weight: 95.2554 kg

DRUGS (11)
  1. DISOPYRAMIDE [Suspect]
  2. RANEXA [Suspect]
     Indication: ANGINA PECTORIS
     Dosage: 1000 MG (500 MG, FREQUENCY: BID), ORAL; 2000 MG (1000 MG, FREQUENCY: BID), ORAL
     Route: 048
     Dates: start: 20060914, end: 20061025
  3. RANEXA [Suspect]
     Indication: ANGINA PECTORIS
     Dosage: 1000 MG (500 MG, FREQUENCY: BID), ORAL; 2000 MG (1000 MG, FREQUENCY: BID), ORAL
     Route: 048
     Dates: start: 20061026, end: 20070101
  4. IMDUR [Concomitant]
  5. K-DUR 10 [Concomitant]
  6. LIPITOR [Concomitant]
  7. XANAX [Concomitant]
  8. LEXAPRO [Concomitant]
  9. TOPROL-XL [Concomitant]
  10. TICLID [Concomitant]
  11. FUROSEMIDE [Concomitant]

REACTIONS (4)
  - CARDIAC FAILURE [None]
  - DYSURIA [None]
  - OEDEMA PERIPHERAL [None]
  - WEIGHT INCREASED [None]
